FAERS Safety Report 11986879 (Version 1)
Quarter: 2016Q1

REPORT INFORMATION
  Report Type: Spontaneous
  Country: US (occurrence: US)
  Receive Date: 20160202
  Receipt Date: 20160202
  Transmission Date: 20160526
  Serious: No
  Sender: FDA-Public Use
  Company Number: US-UCBSA-2014014958

PATIENT
  Age: 60 Year
  Sex: Female

DRUGS (5)
  1. LEVETIRACETAM. [Concomitant]
     Active Substance: LEVETIRACETAM
     Indication: PRODUCT USED FOR UNKNOWN INDICATION
     Dosage: 750 MG IN AM/ 250 MG PM, 2X/DAY (BID)
     Dates: start: 2006
  2. KEPPRA [Suspect]
     Active Substance: LEVETIRACETAM
     Indication: PRODUCT USED FOR UNKNOWN INDICATION
     Dosage: UNK
     Dates: start: 2006
  3. ATIVAN [Concomitant]
     Active Substance: LORAZEPAM
     Indication: SLEEP DISORDER
     Dosage: UNK
  4. LEVETIRACETAM. [Concomitant]
     Active Substance: LEVETIRACETAM
     Dosage: 500 AM /250 PM,2X/DAY (BID)
  5. LEVETIRACETAM. [Concomitant]
     Active Substance: LEVETIRACETAM
     Dosage: 250/250

REACTIONS (7)
  - Unevaluable event [Unknown]
  - Aura [Unknown]
  - Dizziness [Unknown]
  - Feeling abnormal [Unknown]
  - Insomnia [Unknown]
  - Stress [Unknown]
  - Menopause [Unknown]

NARRATIVE: CASE EVENT DATE: 2006
